FAERS Safety Report 6905514-8 (Version None)
Quarter: 2010Q3

REPORT INFORMATION
  Report Type: 
  Country: None (occurrence: None)
  Receive Date: 20100804
  Receipt Date: 20100727
  Transmission Date: 20110219
  Serious: Yes (Hospitalization)
  Sender: FDA-Public Use
  Company Number: FR-PFIZER INC-2010049410

PATIENT
  Age: 60 Year
  Sex: Female

DRUGS (13)
  1. ZYVOX [Suspect]
     Indication: SEPSIS
     Dosage: 600 MG, 2X/DAY
     Dates: start: 20100306, end: 20100313
  2. CIPROFLOXACIN HCL [Suspect]
     Dosage: 500 MG, 2X/DAY
     Route: 048
     Dates: start: 20100302, end: 20100313
  3. DORIPENEM [Suspect]
     Indication: SEPSIS
     Dosage: 500 MG, UNK
     Route: 042
     Dates: start: 20100311, end: 20100313
  4. KEPPRA [Suspect]
     Indication: EPILEPSY
     Dosage: 500 MG, 2X/DAY
     Route: 042
     Dates: start: 20100311, end: 20100313
  5. CLONAZEPAM [Concomitant]
     Indication: EPILEPSY
     Dosage: UNK MG/ML, UNK
     Route: 042
     Dates: start: 20100311, end: 20100311
  6. BACTRIM [Concomitant]
     Dosage: UNK
     Dates: start: 20100303, end: 20100316
  7. CELLCEPT [Concomitant]
     Dosage: 500 MG, UNK
  8. CORTANCYL [Concomitant]
  9. LASIX [Concomitant]
     Dosage: 40 MG, UNK
  10. NEXIUM [Concomitant]
     Dosage: 40 MG, UNK
  11. CACIT D3 [Concomitant]
  12. COLCHIMAX [Concomitant]
  13. DIFFU K [Concomitant]

REACTIONS (4)
  - CONFUSIONAL STATE [None]
  - COUGH [None]
  - DYSARTHRIA [None]
  - RASH [None]
